FAERS Safety Report 6465811-X (Version None)
Quarter: 2009Q4

REPORT INFORMATION
  Report Type: 
  Country: None (occurrence: None)
  Receive Date: 20091201
  Receipt Date: 20081107
  Transmission Date: 20100525
  Serious: No
  Sender: FDA-Public Use
  Company Number: US-AMGEN-KDL318028

PATIENT
  Sex: Male
  Weight: 122.6 kg

DRUGS (10)
  1. ENBREL [Suspect]
     Indication: RHEUMATOID ARTHRITIS
     Route: 058
     Dates: start: 20080612, end: 20080716
  2. ARAVA [Concomitant]
     Dates: start: 20080401
  3. PREDNISONE TAB [Concomitant]
  4. LITHIUM [Concomitant]
  5. CLONAZEPAM [Concomitant]
  6. ADVAIR DISKUS 100/50 [Concomitant]
  7. ALBUTEROL [Concomitant]
  8. MOTRIN [Concomitant]
  9. NALOXONE [Concomitant]
  10. BUPRENORPHINE [Concomitant]

REACTIONS (2)
  - DRUG INEFFECTIVE [None]
  - RHEUMATOID ARTHRITIS [None]
